FAERS Safety Report 5883445-2 (Version None)
Quarter: 2008Q3

REPORT INFORMATION
  Report Type: 
  Country: None (occurrence: None)
  Receive Date: 20080910
  Receipt Date: 20080724
  Transmission Date: 20090109
  Serious: Yes (Other)
  Sender: FDA-Public Use
  Company Number: 2008-00792FE

PATIENT
  Age: 93 Year
  Sex: Female

DRUGS (13)
  1. MINIRIN [Suspect]
     Indication: MICTURITION URGENCY
     Dosage: 10 MCG IN
     Route: 045
     Dates: start: 20071020, end: 20071110
  2. LASILIX FAIBLE(LASILIX/00032601/)(FUROSEMIDE) [Suspect]
     Indication: CARDIAC FAILURE
     Dosage: 20 MG/40 MG PO
     Route: 048
     Dates: end: 20071028
  3. LASILIX FAIBLE(LASILIX/00032601/)(FUROSEMIDE) [Suspect]
     Indication: CARDIAC FAILURE
     Dosage: 20 MG/40 MG PO
     Route: 048
     Dates: start: 20071029
  4. COVERSYL (COVERSYL /00790701/) (PERINCOPRIL) [Suspect]
     Indication: HYPERTENSION
     Dosage: 4 MG PO
     Route: 048
  5. MOPRAL (MOPRAL /00661201/) (OMEPRAZOLE) [Suspect]
     Dosage: 20 MG PO
     Route: 048
  6. IXPRIM [Concomitant]
  7. ACETYLSALICYLATE LYSINE [Concomitant]
  8. TRIMETAZIDINE HYDROCHLORIDE [Concomitant]
  9. OROCAL D (3) [Concomitant]
  10. LORAZEPAM [Concomitant]
  11. DI-ANTALVIC /00016701/ [Concomitant]
  12. TROSPIUM CHLORIDE [Concomitant]
  13. TIAPRIDE [Concomitant]

REACTIONS (4)
  - FALL [None]
  - HYPONATRAEMIA [None]
  - OEDEMA PERIPHERAL [None]
  - OFF LABEL USE [None]
